FAERS Safety Report 7658499-3 (Version None)
Quarter: 2011Q3

REPORT INFORMATION
  Report Type: 
  Country: None (occurrence: None)
  Receive Date: 20110805
  Receipt Date: 20110722
  Transmission Date: 20111222
  Serious: Yes (Hospitalization, Other)
  Sender: FDA-Public Use
  Company Number: FI-CELGENEUS-055-50794-11061482

PATIENT
  Age: 77 Year
  Sex: Male

DRUGS (1)
  1. VIDAZA [Suspect]
     Dosage: 75 MILLIGRAM/SQ. METER
     Route: 065
     Dates: start: 20101220, end: 20101223

REACTIONS (3)
  - PULMONARY EMBOLISM [None]
  - MYELODYSPLASTIC SYNDROME [None]
  - ORGANISING PNEUMONIA [None]
